FAERS Safety Report 10458016 (Version 2)
Quarter: 2014Q3

REPORT INFORMATION
  Report Type: Report from Study
  Country: US (occurrence: US)
  Receive Date: 20140916
  Receipt Date: 20140916
  Transmission Date: 20150326
  Serious: Yes (Other)
  Sender: FDA-Public Use
  Company Number: US-ALEXION PHARMACEUTICALS INC-A200700306

PATIENT

DRUGS (1)
  1. SOLIRIS [Suspect]
     Active Substance: ECULIZUMAB
     Indication: PAROXYSMAL NOCTURNAL HAEMOGLOBINURIA

REACTIONS (15)
  - Abdominal pain [Unknown]
  - Pain [Unknown]
  - Erythema nodosum [Unknown]
  - Surgery [Unknown]
  - Weight increased [Unknown]
  - Fatigue [Unknown]
  - Pyrexia [Unknown]
  - Hysterectomy [Unknown]
  - Headache [Unknown]
  - Sinus congestion [Unknown]
  - Procedural pain [Unknown]
  - Thyroid neoplasm [Unknown]
  - Drug hypersensitivity [Unknown]
  - Osteopenia [Unknown]
  - Aspiration bone marrow [Unknown]
